FAERS Safety Report 13459895 (Version 1)
Quarter: 2017Q2

REPORT INFORMATION
  Report Type: Spontaneous
  Country: GB (occurrence: GB)
  Receive Date: 20170420
  Receipt Date: 20170420
  Transmission Date: 20170830
  Serious: Yes (Other)
  Sender: FDA-Public Use
  Company Number: GB-BIOGEN-2017BI00389698

PATIENT
  Sex: Female

DRUGS (1)
  1. FAMPYRA [Suspect]
     Active Substance: DALFAMPRIDINE
     Indication: GAIT DISTURBANCE
     Route: 065

REACTIONS (5)
  - Joint swelling [Not Recovered/Not Resolved]
  - Headache [Unknown]
  - Hypertension [Not Recovered/Not Resolved]
  - Paraesthesia [Unknown]
  - Rash [Unknown]
